FAERS Safety Report 4381181-5 (Version None)
Quarter: 2004Q2

REPORT INFORMATION
  Report Type: 
  Country: None (occurrence: None)
  Receive Date: 20040617
  Receipt Date: 20040617
  Transmission Date: 20050107
  Serious: No
  Sender: FDA-Public Use
  Company Number: None

PATIENT
  Age: 1 Month
  Sex: Male
  Weight: 8.1647 kg

DRUGS (2)
  1. PREVACID [Suspect]
     Indication: GASTROOESOPHAGEAL REFLUX DISEASE
     Dosage: 18 MG 1 CAP PO PO
     Route: 048
  2. PREVACID [Suspect]
     Indication: WEIGHT GAIN POOR
     Dosage: 18 MG 1 CAP PO PO
     Route: 048

REACTIONS (1)
  - UNEVALUABLE EVENT [None]
